FAERS Safety Report 6462485-9 (Version None)
Quarter: 2009Q4

REPORT INFORMATION
  Report Type: 
  Country: None (occurrence: None)
  Receive Date: 20091130
  Receipt Date: 20091118
  Transmission Date: 20100525
  Serious: Yes (Hospitalization, Other)
  Sender: FDA-Public Use
  Company Number: US-ELI_LILLY_AND_COMPANY-US200909000110

PATIENT
  Sex: Female

DRUGS (10)
  1. FORTEO [Suspect]
     Indication: OSTEOPOROSIS
     Dosage: 20 UG, DAILY (1/D)
     Route: 065
     Dates: start: 20090501
  2. FELODIPINE [Concomitant]
     Dosage: UNK, UNKNOWN
  3. OMEPRAZOLE [Concomitant]
     Dosage: UNK, UNKNOWN
  4. FLAXSEED OIL [Concomitant]
     Dosage: UNK, UNKNOWN
  5. BABY ASPIRIN [Concomitant]
     Dosage: UNK, UNKNOWN
  6. MULTI-VITAMIN [Concomitant]
     Dosage: UNK, UNKNOWN
  7. VITAMIN E [Concomitant]
     Dosage: UNK, UNKNOWN
  8. VITAMIN D [Concomitant]
     Dosage: UNK, UNKNOWN
  9. CALCIUM D /00944201/ [Concomitant]
     Dosage: 500 MG, 2/D
  10. TYLENOL                                 /SCH/ [Concomitant]
     Dosage: UNK, UNKNOWN

REACTIONS (4)
  - FALL [None]
  - FEMUR FRACTURE [None]
  - OEDEMA PERIPHERAL [None]
  - THROMBOSIS [None]
